FAERS Safety Report 23817050 (Version 1)
Quarter: 2024Q2

REPORT INFORMATION
  Report Type: Spontaneous
  Country: FR (occurrence: FR)
  Receive Date: 20240504
  Receipt Date: 20240504
  Transmission Date: 20240715
  Serious: Yes (Hospitalization)
  Sender: FDA-Public Use
  Company Number: None

PATIENT
  Age: 61 Year
  Sex: Female

DRUGS (1)
  1. METHOTREXATE [Suspect]
     Active Substance: METHOTREXATE
     Indication: Psoriasis
     Dates: start: 202203, end: 20221223

REACTIONS (2)
  - Pericardial effusion [Recovered/Resolved]
  - Pneumonia haemophilus [Recovered/Resolved]

NARRATIVE: CASE EVENT DATE: 20220401
